FAERS Safety Report 11559148 (Version 1)
Quarter: 2015Q3

REPORT INFORMATION
  Report Type: Spontaneous
  Country: US (occurrence: US)
  Receive Date: 20150928
  Receipt Date: 20150928
  Transmission Date: 20151125
  Serious: No
  Sender: FDA-Public Use
  Company Number: US-BAYER-2015-430850

PATIENT
  Age: 50 Year
  Sex: Female
  Weight: 101.13 kg

DRUGS (2)
  1. CLARITIN REDITABS [Suspect]
     Active Substance: LORATADINE
     Dosage: UNK UNK, UNK
     Route: 065
  2. CLARITIN REDITABS [Suspect]
     Active Substance: LORATADINE
     Dosage: 2 DF, UNK
     Route: 048

REACTIONS (1)
  - Extra dose administered [Unknown]
